FAERS Safety Report 8542352-7 (Version None)
Quarter: 2012Q3

REPORT INFORMATION
  Report Type: 
  Country: None (occurrence: None)
  Receive Date: 20120726
  Receipt Date: 20111108
  Transmission Date: 20120928
  Serious: Yes (Hospitalization)
  Sender: FDA-Public Use
  Company Number: US-ASTRAZENECA-2011SE50818

PATIENT
  Age: 83 Year
  Sex: Female
  Weight: 61.2 kg

DRUGS (3)
  1. SEROQUEL [Suspect]
     Indication: DEMENTIA
     Route: 048
  2. SEROQUEL [Suspect]
     Route: 048
  3. ARICEPT [Concomitant]
     Indication: DEMENTIA
     Dosage: HS

REACTIONS (5)
  - SPEECH DISORDER [None]
  - OFF LABEL USE [None]
  - VISUAL IMPAIRMENT [None]
  - CEREBROVASCULAR ACCIDENT [None]
  - DYSPHAGIA [None]
